FAERS Safety Report 8174709-0 (Version None)
Quarter: 2012Q1

REPORT INFORMATION
  Report Type: 
  Country: None (occurrence: None)
  Receive Date: 20120229
  Receipt Date: 20120223
  Transmission Date: 20120608
  Serious: Yes (Hospitalization)
  Sender: FDA-Public Use
  Company Number: US-GLAXOSMITHKLINE-A0967910A

PATIENT
  Age: 42 Year
  Sex: Female
  Weight: 65.8 kg

DRUGS (8)
  1. SPIRIVA [Concomitant]
  2. FLOLAN [Suspect]
     Indication: PULMONARY ARTERIAL HYPERTENSION
     Dosage: 20NGKM UNKNOWN
     Route: 042
     Dates: start: 20100521
  3. SYNTHROID [Concomitant]
     Dosage: 200MCG PER DAY
  4. ZOFRAN [Concomitant]
     Dosage: 4MG AS REQUIRED
  5. IMITREX [Concomitant]
     Dosage: 25MG AS REQUIRED
  6. VICODIN [Suspect]
     Indication: PAIN
     Dosage: 37TAB PER DAY
     Route: 048
  7. SPIRONOLACTONE + HYDROCHLOROTHIAZIDE [Concomitant]
  8. LASIX [Concomitant]
     Dosage: 80MG TWICE PER DAY

REACTIONS (3)
  - PULMONARY HYPERTENSION [None]
  - UNRESPONSIVE TO STIMULI [None]
  - OVERDOSE [None]
